FAERS Safety Report 5581413-1 (Version None)
Quarter: 2008Q1

REPORT INFORMATION
  Report Type: 
  Country: None (occurrence: None)
  Receive Date: 20071231
  Receipt Date: 20071217
  Transmission Date: 20080703
  Serious: Yes (Other)
  Sender: FDA-Public Use
  Company Number: 2007BI024046

PATIENT
  Age: 71 Year
  Sex: Female
  Weight: 79.3795 kg

DRUGS (3)
  1. AVONEX [Suspect]
     Indication: MULTIPLE SCLEROSIS
     Dosage: 30 UG;QW;IM; 30 UG;QW
     Dates: start: 19970101, end: 20030101
  2. AVONEX [Suspect]
     Indication: MULTIPLE SCLEROSIS
     Dosage: 30 UG;QW;IM; 30 UG;QW
     Dates: start: 20030101, end: 20070717
  3. DETROL [Concomitant]

REACTIONS (5)
  - BREAST CANCER STAGE II [None]
  - METASTASES TO BONE [None]
  - METASTASES TO LIVER [None]
  - METASTASES TO PLEURA [None]
  - OSTEOPENIA [None]
